FAERS Safety Report 14072544 (Version 3)
Quarter: 2018Q1

REPORT INFORMATION
  Report Type: Report from Study
  Country: BR (occurrence: BR)
  Receive Date: 20171011
  Receipt Date: 20180110
  Transmission Date: 20180508
  Serious: No
  Sender: FDA-Public Use
  Company Number: PHHY2017BR147701

PATIENT
  Sex: Female
  Weight: 75 kg

DRUGS (3)
  1. INVOKANA [Concomitant]
     Active Substance: CANAGLIFLOZIN
     Indication: DIABETES MELLITUS
     Dosage: 300 MG, QD (1 TABLET IN A DAY)
     Route: 048
  2. COSENTYX [Suspect]
     Active Substance: SECUKINUMAB
     Indication: PSORIASIS
     Dosage: 2 DF (150 MG), QMO
     Route: 058
     Dates: start: 20170404
  3. COSENTYX [Suspect]
     Active Substance: SECUKINUMAB
     Dosage: 2 DF (150 MG), QMO
     Route: 058
     Dates: start: 201709, end: 201709

REACTIONS (5)
  - Blister [Unknown]
  - Skin lesion [Recovered/Resolved]
  - Drug ineffective [Recovered/Resolved]
  - Cholelithiasis [Recovered/Resolved]
  - Hepatic steatosis [Recovered/Resolved]
